FAERS Safety Report 6068229-7 (Version None)
Quarter: 2009Q1

REPORT INFORMATION
  Report Type: 
  Country: None (occurrence: None)
  Receive Date: 20090203
  Receipt Date: 20090123
  Transmission Date: 20090719
  Serious: Yes (Life-Threatening, Hospitalization)
  Sender: FDA-Public Use
  Company Number: 2008-04171

PATIENT
  Age: 53 Year
  Sex: Female
  Weight: 104 kg

DRUGS (21)
  1. VELCADE [Suspect]
     Indication: MULTIPLE MYELOMA
     Dosage: 2 MG, INTRAVENOUS
     Route: 042
     Dates: start: 20081021
  2. VELCADE [Suspect]
     Indication: MULTIPLE MYELOMA
     Dosage: 2 MG, INTRAVENOUS
     Route: 042
     Dates: start: 20081024
  3. THALIDOMIDE [Suspect]
     Indication: MULTIPLE MYELOMA
     Dosage: 100 MG, ORAL; 100 MG,
     Route: 048
     Dates: start: 20081028, end: 20081031
  4. THALIDOMIDE [Suspect]
     Indication: MULTIPLE MYELOMA
     Dosage: 100 MG, ORAL; 100 MG,
     Route: 048
     Dates: start: 20081024
  5. DEXAMETHASONE TAB [Suspect]
     Indication: MULTIPLE MYELOMA
     Dosage: 40 MG, ORAL; 40 MG,
     Route: 048
     Dates: start: 20081021
  6. DEXAMETHASONE TAB [Suspect]
     Indication: MULTIPLE MYELOMA
     Dosage: 40 MG, ORAL; 40 MG,
     Route: 048
     Dates: start: 20081024
  7. LOVENOX [Concomitant]
  8. VALACYCLOVIR HCL [Concomitant]
  9. MORPHINE [Concomitant]
  10. PARACETAMOL (PARACETAMOL) [Concomitant]
  11. LASIX [Concomitant]
  12. BRICANYL [Concomitant]
  13. ATROVENT [Concomitant]
  14. MORPHINE SULFATE [Concomitant]
  15. MORPHINE SULFATE [Concomitant]
  16. ATERAX (HYDROXYZINE HYDROCHLORIDE) [Concomitant]
  17. MYOLASTAN (TETRAZEPAM) [Concomitant]
  18. TRAMADOL HCL [Concomitant]
  19. BETASERC (BETAHISTINE HYDROCHLORIDE) [Concomitant]
  20. ESOMEPRAZOLE MAGNESIUM [Concomitant]
  21. ZOLOFT [Concomitant]

REACTIONS (3)
  - BACK PAIN [None]
  - DEEP VEIN THROMBOSIS [None]
  - PULMONARY EMBOLISM [None]
